FAERS Safety Report 17014629 (Version 1)
Quarter: 2019Q4

REPORT INFORMATION
  Report Type: Spontaneous
  Country: CH (occurrence: CH)
  Receive Date: 20191111
  Receipt Date: 20191111
  Transmission Date: 20200122
  Serious: Yes (Life-Threatening, Hospitalization, Other)
  Sender: FDA-Public Use
  Company Number: CH-SA-2019SA308651

PATIENT
  Age: 15 Year
  Sex: Male

DRUGS (19)
  1. GLUCOSE NACL [Concomitant]
  2. GENTAMICINE [GENTAMICIN SULFATE] [Concomitant]
     Active Substance: GENTAMICIN SULFATE
     Route: 058
     Dates: start: 20190926, end: 20191002
  3. VITAMIN C [Concomitant]
     Active Substance: ASCORBIC ACID
     Dosage: UNK
     Dates: start: 20191004
  4. MEROPENEM. [Suspect]
     Active Substance: MEROPENEM
     Dosage: 2 G, TID
     Route: 042
     Dates: start: 20191014, end: 20191018
  5. IBUPROFEN. [Suspect]
     Active Substance: IBUPROFEN
     Dosage: 600 MG, TID
     Route: 048
     Dates: start: 20190926
  6. VANCOMYCIN [Suspect]
     Active Substance: VANCOMYCIN
     Dosage: 0.8 G, QID
     Route: 042
     Dates: start: 20191002
  7. CETIRIZINE [Concomitant]
     Active Substance: CETIRIZINE HYDROCHLORIDE
     Dosage: UNK
     Dates: start: 20191015, end: 20191015
  8. MEROPENEM. [Suspect]
     Active Substance: MEROPENEM
     Dosage: 2 G
     Route: 042
     Dates: start: 20191020
  9. PIPERACILLIN AND TAZOBACTAM [Suspect]
     Active Substance: PIPERACILLIN SODIUM\TAZOBACTAM SODIUM
     Dosage: 4 DOSES
     Route: 042
     Dates: start: 20191013, end: 20191014
  10. FOLIC ACID. [Concomitant]
     Active Substance: FOLIC ACID
     Dosage: UNK
     Dates: start: 20191004
  11. TRAMAL [Concomitant]
     Active Substance: TRAMADOL
     Dosage: IN TOTAL
     Dates: start: 20191022
  12. CLEXANE [Suspect]
     Active Substance: ENOXAPARIN SODIUM
     Dosage: 40 MG, QD
     Route: 058
     Dates: start: 20191004
  13. CETIRIZINE [Concomitant]
     Active Substance: CETIRIZINE HYDROCHLORIDE
     Dosage: UNK
     Dates: start: 20191021, end: 20191021
  14. ESOMEPRAZOLE MAGNESIUM. [Suspect]
     Active Substance: ESOMEPRAZOLE MAGNESIUM
     Dosage: 40 MG, QD
     Route: 048
     Dates: start: 20191004
  15. DAFALGAN [Concomitant]
     Active Substance: ACETAMINOPHEN
     Dosage: AS NECESSARY
  16. MALTOFER [FERRIC HYDROXIDE POLYMALTOSE COMPLEX] [Concomitant]
     Active Substance: IRON POLYMALTOSE
     Dosage: UNK
     Dates: start: 20191005
  17. CETIRIZINE [Concomitant]
     Active Substance: CETIRIZINE HYDROCHLORIDE
     Dosage: AS NECESSARY
     Dates: start: 20191015
  18. FLUCLOXACILLINE [FLUCLOXACILLIN] [Concomitant]
     Dates: start: 20190926, end: 20191002
  19. TRAMAL [Concomitant]
     Active Substance: TRAMADOL
     Dosage: AS NECESSARY

REACTIONS (1)
  - Drug reaction with eosinophilia and systemic symptoms [Not Recovered/Not Resolved]

NARRATIVE: CASE EVENT DATE: 20191012
